FAERS Safety Report 7162757-9 (Version None)
Quarter: 2010Q4

REPORT INFORMATION
  Report Type: 
  Country: None (occurrence: None)
  Receive Date: 20101215
  Receipt Date: 20091214
  Transmission Date: 20110411
  Serious: Yes (Hospitalization, Other)
  Sender: FDA-Public Use
  Company Number: BR-PFIZER INC-2009309832

PATIENT
  Age: 83 Year
  Sex: Female

DRUGS (2)
  1. MINIDIAB [Suspect]
     Route: 048
  2. METFORMIN HCL [Concomitant]

REACTIONS (2)
  - DIABETES MELLITUS [None]
  - URINARY TRACT INFECTION [None]
